FAERS Safety Report 9476767 (Version 2)
Quarter: 2013Q3

REPORT INFORMATION
  Report Type: Spontaneous
  Country: US (occurrence: US)
  Receive Date: 20130826
  Receipt Date: 20130826
  Transmission Date: 20140515
  Serious: No
  Sender: FDA-Public Use
  Company Number: US-BRISTOL-MYERS SQUIBB COMPANY-19001247

PATIENT
  Age: 45 Year
  Sex: Female

DRUGS (2)
  1. KENALOG-40 INJ [Suspect]
     Indication: UPPER RESPIRATORY TRACT INFECTION
     Dosage: ONE TIME DOSE
     Route: 030
     Dates: start: 20121228
  2. KENALOG-40 INJ [Suspect]
     Indication: INFLUENZA
     Dosage: ONE TIME DOSE
     Route: 030
     Dates: start: 20121228

REACTIONS (2)
  - Skin atrophy [Unknown]
  - Off label use [Unknown]
